FAERS Safety Report 16149368 (Version 2)
Quarter: 2019Q4

REPORT INFORMATION
  Report Type: Spontaneous
  Country: US (occurrence: US)
  Receive Date: 20190402
  Receipt Date: 20191015
  Transmission Date: 20200122
  Serious: No
  Sender: FDA-Public Use
  Company Number: US-PFIZER INC-2019134333

PATIENT
  Age: 69 Year
  Sex: Female
  Weight: 78.47 kg

DRUGS (2)
  1. LYRICA [Suspect]
     Active Substance: PREGABALIN
     Indication: PAIN
     Dosage: 50 MG, 1X/DAY AT BEDTIME, [EVERY NIGHT]
     Route: 048
  2. LYRICA [Suspect]
     Active Substance: PREGABALIN
     Indication: ARTHRITIS

REACTIONS (10)
  - Weight increased [Unknown]
  - Euphoric mood [Unknown]
  - Confusional state [Unknown]
  - Dizziness [Unknown]
  - Peripheral swelling [Unknown]
  - Disturbance in attention [Unknown]
  - Somnolence [Unknown]
  - Dry mouth [Unknown]
  - Vision blurred [Unknown]
  - Feeling abnormal [Unknown]
